FAERS Safety Report 9581433 (Version 1)
Quarter: 2013Q4

REPORT INFORMATION
  Report Type: Spontaneous
  Country: AU (occurrence: AU)
  Receive Date: 20131002
  Receipt Date: 20131002
  Transmission Date: 20140711
  Serious: Yes (Other)
  Sender: FDA-Public Use
  Company Number: PHHY2013AU109409

PATIENT
  Age: 72 Year
  Sex: Female

DRUGS (1)
  1. ZOMETA [Suspect]

REACTIONS (2)
  - Atrial fibrillation [Unknown]
  - Chest pain [Unknown]
